FAERS Safety Report 21884530 (Version 2)
Quarter: 2023Q2

REPORT INFORMATION
  Report Type: Report from Study
  Country: US (occurrence: US)
  Receive Date: 20230119
  Receipt Date: 20230412
  Transmission Date: 20230722
  Serious: Yes (Other)
  Sender: FDA-Public Use
  Company Number: US-RECORDATI-2023000147

PATIENT

DRUGS (2)
  1. ISTURISA [Suspect]
     Active Substance: OSILODROSTAT PHOSPHATE
     Indication: Cushing^s syndrome
     Dosage: 1 MILLIGRAM, BID
     Route: 048
     Dates: start: 20220510
  2. ISTURISA [Suspect]
     Active Substance: OSILODROSTAT PHOSPHATE
     Indication: Cortisol increased

REACTIONS (17)
  - Seizure [Unknown]
  - Seizure [Unknown]
  - Muscle atrophy [Unknown]
  - Weight increased [Unknown]
  - Adrenal mass [Unknown]
  - Thyroid mass [Unknown]
  - Palpitations [Unknown]
  - Hypersomnia [Unknown]
  - Dyspnoea exertional [Unknown]
  - Dehydration [Unknown]
  - Weight decreased [Unknown]
  - Pain [Unknown]
  - Fatigue [Unknown]
  - Acne [Unknown]
  - Head discomfort [Unknown]
  - Malaise [Unknown]
  - Off label use [Recovered/Resolved]

NARRATIVE: CASE EVENT DATE: 20220101
